FAERS Safety Report 4932175-X (Version None)
Quarter: 2006Q1

REPORT INFORMATION
  Report Type: 
  Country: None (occurrence: None)
  Receive Date: 20060303
  Receipt Date: 20020503
  Transmission Date: 20060701
  Serious: Yes (Hospitalization)
  Sender: FDA-Public Use
  Company Number: PHBS2002SE05452

PATIENT
  Sex: Female

DRUGS (1)
  1. METHERGINE [Suspect]
     Indication: POSTPARTUM HAEMORRHAGE
     Dates: start: 20000913, end: 20000914

REACTIONS (3)
  - BRAIN STEM INFARCTION [None]
  - DIPLOPIA [None]
  - DIZZINESS [None]
